FAERS Safety Report 9692606 (Version 2)
Quarter: 2014Q1

REPORT INFORMATION
  Report Type: Report from Study
  Country: FI (occurrence: FI)
  Receive Date: 20131118
  Receipt Date: 20140212
  Transmission Date: 20141002
  Serious: Yes (Hospitalization, Other)
  Sender: FDA-Public Use
  Company Number: PHHY2013FI130230

PATIENT
  Age: 58 Year
  Sex: Male

DRUGS (14)
  1. LEPONEX [Suspect]
     Indication: SCHIZOPHRENIA, DISORGANISED TYPE
     Dosage: UNK
     Dates: start: 1991, end: 20131030
  2. LEPONEX [Suspect]
     Dosage: 100 MG+100 MG+350MG
     Dates: start: 20131120
  3. DEPRAKINE [Concomitant]
     Dosage: 900 MG, BID
  4. DIAPAM [Concomitant]
     Dosage: 10 MG, TID
  5. VENTOLINE [Concomitant]
     Dosage: 0.1 MG/DOSE AS NEEDED
  6. PULMICORT [Concomitant]
     Dosage: 2 DOSES, BID
     Route: 055
  7. SERENASE//QUETIAPINE FUMARATE [Concomitant]
  8. LAXOBERON [Concomitant]
     Dosage: 10 DROPS AS NEEDED
  9. LEVOLAC [Concomitant]
     Dosage: 20 MG, BID
  10. COLONSOFT [Concomitant]
     Dosage: 1 DOSE, QD
  11. CALCICHEW-D3 [Concomitant]
     Dosage: 500 MG/10UG, QD
  12. PANADOL [Concomitant]
     Dosage: 1 G, AS NEEDED
  13. TEMESTA [Concomitant]
     Dosage: 1 MG, TID
  14. GASTROSTAD//PANTOPRAZOLE SODIUM SESQUIHYDRATE [Concomitant]
     Dosage: 40 MG, QD

REACTIONS (12)
  - Septic shock [Recovered/Resolved]
  - Escherichia test positive [Recovered/Resolved]
  - Sepsis [Recovered/Resolved]
  - Pyrexia [Unknown]
  - Pneumonia [Recovered/Resolved]
  - Thrombocytopenia [Recovered/Resolved]
  - Leukopenia [Recovered/Resolved]
  - C-reactive protein increased [Recovered/Resolved]
  - Hydronephrosis [Unknown]
  - Lung infection [Unknown]
  - Constipation [Unknown]
  - Haemoglobin decreased [Unknown]
